FAERS Safety Report 8836496 (Version 2)
Quarter: 2012Q4

REPORT INFORMATION
  Report Type: 
  Country: IT (occurrence: IT)
  Receive Date: 20121011
  Receipt Date: 20121102
  Transmission Date: 20130627
  Serious: Yes (Hospitalization)
  Sender: FDA-Public Use
  Company Number: IT-PFIZER INC-2012252589

PATIENT
  Age: 81 Year
  Sex: Female

DRUGS (5)
  1. RAMIPRIL [Suspect]
     Dosage: 10 mg, 1x/day
     Route: 048
     Dates: start: 20110731, end: 20120730
  2. LASIX [Suspect]
     Dosage: 75 mg, 1x/day
     Route: 048
     Dates: start: 20110731, end: 20120730
  3. TEGRETOL [Suspect]
     Indication: POST-TRAUMATIC EPILEPSY
     Dosage: 800 mg, 1x/day
     Route: 048
     Dates: start: 20110731, end: 20120730
  4. LUVION [Concomitant]
     Dosage: 50 mg, UNK
  5. ALLOPURINOL [Concomitant]
     Dosage: UNK

REACTIONS (2)
  - Hyponatraemia [Unknown]
  - Dehydration [Unknown]
